FAERS Safety Report 4762950-6 (Version None)
Quarter: 2005Q3

REPORT INFORMATION
  Report Type: 
  Country: None (occurrence: None)
  Receive Date: 20050901
  Receipt Date: 20050620
  Transmission Date: 20060218
  Serious: No
  Sender: FDA-Public Use
  Company Number: 200511249BWH

PATIENT
  Age: 67 Year
  Sex: Male

DRUGS (5)
  1. LEVITRA [Suspect]
     Dosage: 10 MG TOTAL DAILY ORAL
     Route: 048
     Dates: start: 20050101
  2. LIPITOR [Concomitant]
  3. ASPIRIN [Concomitant]
  4. NIACIN [Concomitant]
  5. TOPROL-XL [Concomitant]

REACTIONS (1)
  - DRUG INEFFECTIVE [None]
